FAERS Safety Report 7197821-1 (Version None)
Quarter: 2010Q4

REPORT INFORMATION
  Report Type: 
  Country: None (occurrence: None)
  Receive Date: 20101227
  Receipt Date: 20101217
  Transmission Date: 20110411
  Serious: Yes (Life-Threatening)
  Sender: FDA-Public Use
  Company Number: US-GENZYME-CLOF-1001331

PATIENT
  Sex: Female
  Weight: 58.8 kg

DRUGS (35)
  1. CLOFARABINE [Suspect]
     Indication: ACUTE LYMPHOCYTIC LEUKAEMIA
     Dosage: 66 MG, QDX5
     Route: 042
     Dates: start: 20101111, end: 20101115
  2. ETOPOSIDE [Suspect]
     Indication: ACUTE LYMPHOCYTIC LEUKAEMIA
     Dosage: 165 MG, QDX5
     Route: 042
     Dates: start: 20101111, end: 20101115
  3. CYCLOPHOSPHAMIDE [Suspect]
     Indication: ACUTE LYMPHOCYTIC LEUKAEMIA
     Dosage: 725 MG, QDX5
     Route: 042
     Dates: start: 20101111, end: 20101115
  4. METHOTREXATE [Suspect]
     Indication: ACUTE LYMPHOCYTIC LEUKAEMIA
     Dosage: 15 MG, ONCE
     Route: 037
     Dates: start: 20101110, end: 20101110
  5. SARNA [Concomitant]
     Indication: DRY SKIN
     Dosage: 0.5 %, PRN
     Route: 061
     Dates: start: 20101117
  6. ROBITUSSIN A-C [Concomitant]
     Indication: COUGH
     Dosage: 5 ML, PRN
     Route: 048
     Dates: start: 20101120
  7. BENADRYL [Concomitant]
     Indication: PREMEDICATION
     Dosage: 50 MG, PRN
     Route: 042
     Dates: start: 20101117
  8. NEUTONIN [Concomitant]
     Indication: PAIN
     Dosage: 100 MG, UNK
     Route: 048
     Dates: start: 20101110, end: 20101125
  9. NORCO [Concomitant]
     Indication: PAIN
     Dosage: 325 MG, UNK
     Route: 048
     Dates: start: 20101111, end: 20101127
  10. EMLA [Concomitant]
     Indication: PAIN
     Dosage: 2.50 %, UNK
     Route: 061
     Dates: start: 20101112
  11. CLARITIN [Concomitant]
     Indication: MULTIPLE ALLERGIES
     Dosage: 10 MG, UNK
     Route: 048
     Dates: start: 20101116
  12. ATIVAN [Concomitant]
     Indication: NAUSEA
     Dosage: 1 MG, PRN
     Route: 042
     Dates: start: 20101112, end: 20101127
  13. CALMOSEPTINE [Concomitant]
     Indication: DRY SKIN
     Dosage: UNK
     Route: 061
     Dates: start: 20101114
  14. DEMEROL [Concomitant]
     Indication: CHILLS
     Dosage: 25 MG, PRN
     Route: 061
     Dates: start: 20101119, end: 20101120
  15. EUCERIN [Concomitant]
     Indication: DRY SKIN
     Dosage: UNK
     Route: 061
     Dates: start: 20101117
  16. MORPHINE [Concomitant]
     Indication: PAIN
     Dosage: 2 MG, PRN
     Dates: start: 20101112, end: 20101127
  17. ZOFRAN [Concomitant]
     Indication: NAUSEA
     Dosage: 8 MG, PRN
     Route: 042
     Dates: start: 20101119
  18. ZOFRAN [Concomitant]
     Dosage: 24 MG, UNK
     Route: 042
     Dates: start: 20101111, end: 20101119
  19. MIRALAX [Concomitant]
     Indication: CONSTIPATION
     Dosage: 17 G, PRN
     Route: 048
     Dates: start: 20101112
  20. PHENERGAN [Concomitant]
     Indication: NAUSEA
     Dosage: 21.5 MG, PRN
     Route: 042
     Dates: start: 20101112
  21. BACTRIM [Concomitant]
     Indication: PROPHYLAXIS
     Dosage: 160 MG, UNK
     Route: 048
     Dates: start: 20101113
  22. LASIX [Concomitant]
     Indication: DIURETIC THERAPY
     Dosage: 40 MG, PRN
     Route: 042
     Dates: start: 20101113
  23. SOLU-CORTEF [Concomitant]
     Indication: PREMEDICATION
     Dosage: 165 MG, UNK
     Route: 042
     Dates: start: 20101111, end: 20101115
  24. LEUCOVORIN [Concomitant]
     Indication: PROPHYLAXIS
     Dosage: 7.5 MG, UNK
     Route: 048
     Dates: start: 20101112, end: 20101113
  25. VERSED [Concomitant]
     Indication: SEDATION
     Dosage: 15 MG, UNK
     Route: 048
     Dates: start: 20101119, end: 20101120
  26. ALLOPURINOL [Concomitant]
     Indication: PROPHYLAXIS
     Dosage: 200 MG, UNK
     Route: 048
     Dates: start: 20101110, end: 20101113
  27. FORTAZ [Concomitant]
     Indication: ANTI-INFECTIVE THERAPY
     Dosage: 2000 MG, UNK
     Route: 042
     Dates: start: 20101111, end: 20101117
  28. CLINDAMYCIN [Concomitant]
     Indication: ANTI-INFECTIVE THERAPY
     Dosage: 600 MG, UNK
     Route: 042
     Dates: start: 20101112, end: 20101116
  29. MICAFUNGIN [Concomitant]
     Indication: ANTIFUNGAL TREATMENT
     Dosage: 50 MG, UNK
     Route: 042
     Dates: start: 20101116, end: 20101118
  30. ZOFRAN [Concomitant]
     Dosage: 24 MG, UNK
     Route: 042
     Dates: start: 20101111, end: 20101120
  31. POSACONAZOLE [Concomitant]
     Indication: PRODUCT USED FOR UNKNOWN INDICATION
     Dosage: 200 MG, UNK
     Route: 048
     Dates: start: 20101116, end: 20101117
  32. SOLUTIONS FOR PARENTERAL NUTRITION [Concomitant]
     Indication: MEDICAL DIET
     Dosage: 2160 ML, UNK
     Route: 042
     Dates: start: 20101122, end: 20101125
  33. MIDAZOLAM HCL [Concomitant]
     Indication: AGITATION
     Dosage: 2 MG, UNK
     Route: 042
     Dates: start: 20101124, end: 20101125
  34. PROMETHAZINE [Concomitant]
     Indication: NAUSEA
     Dosage: 12.5 MG, UNK
     Route: 042
     Dates: start: 20101112
  35. FUROSEMIDE [Concomitant]
     Indication: DIURETIC THERAPY
     Dosage: 40 MG, UNK
     Route: 042
     Dates: start: 20101113

REACTIONS (6)
  - ACUTE RESPIRATORY DISTRESS SYNDROME [None]
  - BLOOD BILIRUBIN INCREASED [None]
  - BLOOD SODIUM INCREASED [None]
  - HYPOTENSION [None]
  - LUNG INFECTION [None]
  - PNEUMONITIS [None]
